FAERS Safety Report 8828004 (Version 1)
Quarter: 2012Q4

REPORT INFORMATION
  Report Type: 
  Country: US (occurrence: US)
  Receive Date: 20121005
  Receipt Date: 20121005
  Transmission Date: 20130627
  Serious: Yes (Hospitalization)
  Sender: FDA-Public Use
  Company Number: US-BAYER-2012-102609

PATIENT
  Age: 23 Year
  Sex: Female
  Weight: 74.83 kg

DRUGS (6)
  1. YAZ [Suspect]
  2. IBUPROFEN [Concomitant]
     Dosage: 800 mg,every 8 hours
     Route: 048
  3. SCOPOLAMINE [Concomitant]
     Dosage: UNK
  4. PERCOCET [Concomitant]
     Dosage: 1 every 4 hours, PRN
     Route: 048
     Dates: start: 20090617
  5. KEFLEX [Concomitant]
     Dosage: 500 mg, UNK
     Route: 048
  6. FLUCONAZOLE [Concomitant]
     Dosage: 150 mg, UNK

REACTIONS (1)
  - Deep vein thrombosis [None]
